FAERS Safety Report 10665162 (Version 4)
Quarter: 2015Q1

REPORT INFORMATION
  Report Type: Report from Study
  Country: US (occurrence: US)
  Receive Date: 20141219
  Receipt Date: 20150313
  Transmission Date: 20150720
  Serious: Yes (Hospitalization, Other)
  Sender: FDA-Public Use
  Company Number: US-BAYER-2014-173322

PATIENT
  Age: 67 Year
  Sex: Male

DRUGS (1)
  1. NEXAVAR [Suspect]
     Active Substance: SORAFENIB
     Indication: HEPATIC CANCER
     Dosage: 400 MG, BID
     Route: 048
     Dates: start: 20141106, end: 20150310

REACTIONS (20)
  - Chest discomfort [Recovered/Resolved]
  - Flushing [Recovered/Resolved]
  - Diarrhoea [None]
  - Abdominal pain [Recovered/Resolved]
  - Pain in extremity [Recovered/Resolved]
  - Nipple pain [None]
  - Weight decreased [None]
  - Abdominal discomfort [None]
  - Fatigue [None]
  - Decreased appetite [None]
  - Fatigue [None]
  - Erythema [None]
  - Abdominal distension [Recovered/Resolved]
  - Heart rate increased [Recovered/Resolved]
  - Dysphonia [None]
  - Weight decreased [None]
  - Abdominal pain upper [None]
  - Decreased appetite [None]
  - Musculoskeletal pain [Recovering/Resolving]
  - Skin discolouration [None]

NARRATIVE: CASE EVENT DATE: 20141112
